FAERS Safety Report 15272612 (Version 1)
Quarter: 2018Q4

REPORT INFORMATION
  Report Type: Spontaneous
  Country: CA (occurrence: CA)
  Receive Date: 20180813
  Receipt Date: 20180813
  Transmission Date: 20190204
  Serious: Yes (Hospitalization)
  Sender: FDA-Public Use
  Company Number: CA-TEVA-2018-CA-940071

PATIENT
  Age: 66 Year
  Sex: Female
  Weight: 79 kg

DRUGS (1)
  1. PACLITAXEL USP [Suspect]
     Active Substance: PACLITAXEL
     Route: 042

REACTIONS (1)
  - Cough [Recovered/Resolved]
